FAERS Safety Report 7547076-0 (Version None)
Quarter: 2011Q2

REPORT INFORMATION
  Report Type: 
  Country: None (occurrence: None)
  Receive Date: 20110614
  Receipt Date: 20101116
  Transmission Date: 20111010
  Serious: Yes (Death, Hospitalization)
  Sender: FDA-Public Use
  Company Number: BR-US-EMD SERONO, INC.-7027016

PATIENT
  Sex: Female

DRUGS (1)
  1. REBIF [Suspect]
     Indication: RELAPSING-REMITTING MULTIPLE SCLEROSIS
     Dates: start: 20100305

REACTIONS (6)
  - OCULAR ICTERUS [None]
  - ABDOMINAL NEOPLASM [None]
  - SPEECH DISORDER [None]
  - ABDOMINAL PAIN [None]
  - METASTASIS [None]
  - CHROMATURIA [None]
